FAERS Safety Report 24745899 (Version 1)
Quarter: 2024Q4

REPORT INFORMATION
  Report Type: Spontaneous
  Country: CA (occurrence: CA)
  Receive Date: 20241218
  Receipt Date: 20241218
  Transmission Date: 20250115
  Serious: Yes (Other)
  Sender: CELLTRION
  Company Number: CA-PFIZER INC-202400302041

PATIENT

DRUGS (2)
  1. INFLECTRA [Suspect]
     Active Substance: INFLIXIMAB-DYYB
     Indication: Rheumatoid arthritis
     Dosage: 5 MG/KG  (INDUCTION WEEK 0, 2, 6 THEN MAINTENANCE EVERY 6 WEEKS)
     Route: 042
     Dates: start: 20241121
  2. INFLECTRA [Suspect]
     Active Substance: INFLIXIMAB-DYYB
     Dosage: 5 MG/KG  (INDUCTION WEEK 0, 2, 6 THEN MAINTENANCE EVERY 6 WEEKS)
     Route: 042
     Dates: start: 20241204

REACTIONS (6)
  - Paraesthesia [Unknown]
  - Back pain [Unknown]
  - Pelvic pain [Unknown]
  - Constipation [Recovered/Resolved]
  - Off label use [Unknown]
  - Off label use [Unknown]

NARRATIVE: CASE EVENT DATE: 20240101
